FAERS Safety Report 6889610-X (Version None)
Quarter: 2010Q3

REPORT INFORMATION
  Report Type: 
  Country: None (occurrence: None)
  Receive Date: 20100730
  Receipt Date: 20080319
  Transmission Date: 20110219
  Serious: No
  Sender: FDA-Public Use
  Company Number: US-PFIZER INC-2008014269

PATIENT
  Sex: Female
  Weight: 79.545 kg

DRUGS (5)
  1. LIPITOR [Suspect]
     Indication: BLOOD CHOLESTEROL INCREASED
     Dates: start: 20010101
  2. IRON [Interacting]
     Indication: BLOOD IRON DECREASED
  3. SYNTHROID [Concomitant]
  4. ARTHROTEC [Concomitant]
  5. ZETIA [Concomitant]

REACTIONS (3)
  - BLOOD CHOLESTEROL INCREASED [None]
  - BLOOD IRON DECREASED [None]
  - DRUG INTERACTION [None]
